FAERS Safety Report 13551670 (Version 1)
Quarter: 2017Q2

REPORT INFORMATION
  Report Type: Spontaneous
  Country: US (occurrence: US)
  Receive Date: 20170516
  Receipt Date: 20170516
  Transmission Date: 20170830
  Serious: Yes (Other)
  Sender: FDA-Public Use
  Company Number: US-ACTELION-A-NJ2017-153623

PATIENT
  Age: 79 Year
  Sex: Male

DRUGS (12)
  1. OPSUMIT [Suspect]
     Active Substance: MACITENTAN
     Indication: PULMONARY ARTERIAL HYPERTENSION
     Dosage: 10 MG, QD
     Route: 048
     Dates: start: 20170216, end: 20170509
  2. NITROGLYCERIN. [Concomitant]
     Active Substance: NITROGLYCERIN
  3. SIMVASTATIN. [Concomitant]
     Active Substance: SIMVASTATIN
  4. IPRATROPIUM W/SALBUTAMOL [Concomitant]
     Dosage: UNK
  5. RANITIDINE. [Concomitant]
     Active Substance: RANITIDINE
  6. NIFEDICAL XL [Concomitant]
     Active Substance: NIFEDIPINE
  7. POTASSIUM [Concomitant]
     Active Substance: POTASSIUM
  8. ESCITALOPRAM [Concomitant]
     Active Substance: ESCITALOPRAM OXALATE
  9. LISINOPRIL. [Concomitant]
     Active Substance: LISINOPRIL
     Dosage: 10 MG, UNK
  10. LASIX [Concomitant]
     Active Substance: FUROSEMIDE
     Dosage: 40 MG, UNK
  11. ASPIRIN. [Concomitant]
     Active Substance: ASPIRIN
  12. HUMULIN NOS [Concomitant]
     Active Substance: INSULIN HUMAN
     Dosage: 100 U, UNK

REACTIONS (1)
  - Pulmonary oedema [Unknown]
